FAERS Safety Report 23155110 (Version 1)
Quarter: 2023Q4

REPORT INFORMATION
  Report Type: Other
  Country: US (occurrence: US)
  Receive Date: 20231107
  Receipt Date: 20231107
  Transmission Date: 20240109
  Serious: No
  Sender: FDA-Public Use
  Company Number: US-LEADIANT BIOSCIENCES INC-2023STPI000302

PATIENT
  Sex: Male

DRUGS (1)
  1. CYSTARAN [Suspect]
     Active Substance: CYSTEAMINE HYDROCHLORIDE
     Indication: Cystinosis
     Dosage: INSTILL 1 DROP IN EACH EYE EVERY HOUR WHILE AWAKE
     Route: 047
     Dates: start: 20230614

REACTIONS (1)
  - Ocular hyperaemia [Unknown]
